FAERS Safety Report 15719738 (Version 4)
Quarter: 2020Q1

REPORT INFORMATION
  Report Type: Report from Study
  Country: US (occurrence: US)
  Receive Date: 20181213
  Receipt Date: 20200306
  Transmission Date: 20200409
  Serious: Yes (Hospitalization, Other)
  Sender: FDA-Public Use
  Company Number: US-ACTELION-A-NJ2018-182836

PATIENT
  Age: 83 Year
  Sex: Female

DRUGS (2)
  1. TYVASO [Concomitant]
     Active Substance: TREPROSTINIL
  2. OPSUMIT [Suspect]
     Active Substance: MACITENTAN
     Indication: PULMONARY ARTERIAL HYPERTENSION
     Dosage: 10 MG, QD
     Route: 048
     Dates: start: 20150529

REACTIONS (8)
  - Pain [Not Recovered/Not Resolved]
  - Suicide threat [Unknown]
  - Headache [Not Recovered/Not Resolved]
  - Pneumonia [Recovering/Resolving]
  - Dyspnoea [Unknown]
  - Haemoptysis [Recovering/Resolving]
  - Insomnia [Unknown]
  - Wrong dose [Unknown]

NARRATIVE: CASE EVENT DATE: 20181127
